FAERS Safety Report 16654337 (Version 5)
Quarter: 2021Q3

REPORT INFORMATION
  Report Type: Spontaneous
  Country: US (occurrence: US)
  Receive Date: 20190731
  Receipt Date: 20210729
  Transmission Date: 20211014
  Serious: Yes (Other)
  Sender: FDA-Public Use
  Company Number: US-GILEAD-2019-0420414

PATIENT
  Age: 52 Year
  Sex: Male
  Weight: 83.91 kg

DRUGS (14)
  1. OXYCODONE [Concomitant]
     Active Substance: OXYCODONE
  2. BACLOFEN. [Concomitant]
     Active Substance: BACLOFEN
  3. GABAPENTIN. [Concomitant]
     Active Substance: GABAPENTIN
  4. NAPROXEN. [Concomitant]
     Active Substance: NAPROXEN
  5. REYATAZ [Concomitant]
     Active Substance: ATAZANAVIR SULFATE
  6. TRIUMEQ [Concomitant]
     Active Substance: ABACAVIR SULFATE\DOLUTEGRAVIR SODIUM\LAMIVUDINE
  7. TRIMETHOPRIM SULFAMETHOXAZOLE [Concomitant]
     Active Substance: SULFAMETHOXAZOLE\TRIMETHOPRIM
  8. TRUVADA [Suspect]
     Active Substance: EMTRICITABINE\TENOFOVIR DISOPROXIL FUMARATE
     Indication: HIV INFECTION
     Dosage: UNK
     Route: 048
     Dates: start: 20050126, end: 20170926
  9. ACETAMINOPHEN. [Concomitant]
     Active Substance: ACETAMINOPHEN
  10. NORVIR [Concomitant]
     Active Substance: RITONAVIR
  11. IBUPROFEN. [Concomitant]
     Active Substance: IBUPROFEN
  12. INSULIN [Concomitant]
     Active Substance: INSULIN NOS
     Indication: DIABETES MELLITUS
  13. FLUTICASONE. [Concomitant]
     Active Substance: FLUTICASONE
  14. LEXIVA [Concomitant]
     Active Substance: FOSAMPRENAVIR CALCIUM

REACTIONS (20)
  - Economic problem [Unknown]
  - Post procedural infection [Unknown]
  - Infection [Unknown]
  - Spinal stenosis [Unknown]
  - Pain [Unknown]
  - Humerus fracture [Unknown]
  - Intervertebral disc degeneration [Unknown]
  - Multiple fractures [Unknown]
  - Osteoarthritis [Unknown]
  - Bone loss [Unknown]
  - Spinal stenosis [Unknown]
  - Intervertebral disc degeneration [Unknown]
  - Anxiety [Unknown]
  - Rotator cuff syndrome [Unknown]
  - Osteonecrosis [Unknown]
  - Anhedonia [Unknown]
  - Osteonecrosis [Unknown]
  - Spinal instability [Unknown]
  - Emotional distress [Unknown]
  - Depression [Not Recovered/Not Resolved]

NARRATIVE: CASE EVENT DATE: 2013
